FAERS Safety Report 6807151-2 (Version None)
Quarter: 2010Q2

REPORT INFORMATION
  Report Type: 
  Country: None (occurrence: None)
  Receive Date: 20100629
  Receipt Date: 20080721
  Transmission Date: 20101027
  Serious: No
  Sender: FDA-Public Use
  Company Number: US-PFIZER INC-2008054812

PATIENT
  Sex: Female
  Weight: 81.19 kg

DRUGS (1)
  1. ZYVOX [Suspect]
     Indication: STAPHYLOCOCCAL INFECTION
     Dates: start: 20080617, end: 20080621

REACTIONS (6)
  - COUGH [None]
  - GLOSSODYNIA [None]
  - ORAL PAIN [None]
  - OROPHARYNGEAL PAIN [None]
  - PROCTALGIA [None]
  - TONGUE DISORDER [None]
